FAERS Safety Report 7931108-1 (Version None)
Quarter: 2011Q4

REPORT INFORMATION
  Report Type: 
  Country: None (occurrence: None)
  Receive Date: 20111121
  Receipt Date: 20111116
  Transmission Date: 20120403
  Serious: Yes (Other)
  Sender: FDA-Public Use
  Company Number: US-PFIZER INC-2011280982

PATIENT
  Sex: Male

DRUGS (6)
  1. SABRIL [Interacting]
     Indication: INFANTILE SPASMS
     Dosage: 500 MG, UNK
     Dates: start: 20100901
  2. SABRIL [Interacting]
     Indication: EPILEPSY
     Dosage: 2000 MG, 1X/DAY (QAM)
     Route: 048
     Dates: start: 20100901
  3. LEVOCARNITINE [Concomitant]
     Dosage: UNK
     Route: 048
  4. AZITHROMYCIN [Suspect]
     Dosage: 200 MG, UNK (QID)
     Route: 048
     Dates: start: 20111101
  5. ZONEGRAN [Concomitant]
     Dosage: 25 MG, UNK
     Route: 048
  6. SABRIL [Interacting]
     Dosage: 1500 MG, 1X/DAY (QPM)
     Route: 048
     Dates: start: 20100901

REACTIONS (2)
  - DRUG INTERACTION [None]
  - CONVULSION [None]
